FAERS Safety Report 13006935 (Version 1)
Quarter: 2016Q4

REPORT INFORMATION
  Report Type: Spontaneous
  Country: US (occurrence: US)
  Receive Date: 20161207
  Receipt Date: 20161207
  Transmission Date: 20170207
  Serious: Yes (Death, Other)
  Sender: FDA-Public Use
  Company Number: US-CELGENEUS-USA-2014114148

PATIENT

DRUGS (3)
  1. PRACINOSTAT [Suspect]
     Active Substance: PRACINOSTAT
     Indication: ACUTE MYELOID LEUKAEMIA
     Dosage: 60 MG
     Route: 048
  2. VIDAZA [Suspect]
     Active Substance: AZACITIDINE
     Indication: OFF LABEL USE
  3. VIDAZA [Suspect]
     Active Substance: AZACITIDINE
     Indication: ACUTE MYELOID LEUKAEMIA
     Dosage: 75 MG/M2
     Route: 041

REACTIONS (25)
  - Lung infiltration [Unknown]
  - Thrombocytopenia [Unknown]
  - Neutropenia [Unknown]
  - Cellulitis [Unknown]
  - Syncope [Unknown]
  - Bacteraemia [Fatal]
  - Subdural haematoma [Fatal]
  - Atrial fibrillation [Unknown]
  - Fall [Unknown]
  - Hypoxia [Unknown]
  - Parainfluenzae virus infection [Unknown]
  - Anaemia [Unknown]
  - Pneumonia [Unknown]
  - Sepsis [Unknown]
  - Decreased appetite [Unknown]
  - Asthenia [Unknown]
  - Urinary tract infection [Unknown]
  - Acute myeloid leukaemia [Fatal]
  - Febrile neutropenia [Unknown]
  - Fatigue [Unknown]
  - Peripheral motor neuropathy [Unknown]
  - Nausea [Unknown]
  - Pancytopenia [Unknown]
  - Back pain [Unknown]
  - Hyponatraemia [Unknown]
